FAERS Safety Report 24337317 (Version 1)
Quarter: 2024Q3

REPORT INFORMATION
  Report Type: Spontaneous
  Country: FR (occurrence: FR)
  Receive Date: 20240919
  Receipt Date: 20240919
  Transmission Date: 20241016
  Serious: Yes (Hospitalization, Other)
  Sender: HIKMA
  Company Number: None

PATIENT
  Age: 46 Year
  Sex: Male
  Weight: 79 kg

DRUGS (5)
  1. SUCCINYLCHOLINE CHLORIDE [Suspect]
     Active Substance: SUCCINYLCHOLINE CHLORIDE
     Indication: Endotracheal intubation
     Dosage: UNKNOWN
     Route: 042
     Dates: start: 20240604, end: 20240604
  2. ETOMIDATE [Suspect]
     Active Substance: ETOMIDATE
     Indication: Alcohol poisoning
     Dosage: UNKNOWN
     Route: 042
     Dates: start: 20240604, end: 20240604
  3. ETOMIDATE [Suspect]
     Active Substance: ETOMIDATE
     Indication: Toxicity to various agents
  4. FLUMAZENIL [Suspect]
     Active Substance: FLUMAZENIL
     Indication: Alcohol poisoning
     Dosage: UNKNOWN
     Route: 042
     Dates: start: 20240604, end: 20240604
  5. FLUMAZENIL [Suspect]
     Active Substance: FLUMAZENIL
     Indication: Toxicity to various agents

REACTIONS (1)
  - Trismus [Recovered/Resolved]

NARRATIVE: CASE EVENT DATE: 20240604
